FAERS Safety Report 4596068-2 (Version None)
Quarter: 2005Q1

REPORT INFORMATION
  Report Type: 
  Country: None (occurrence: None)
  Receive Date: 20050225
  Receipt Date: 20050215
  Transmission Date: 20050727
  Serious: Yes (Other)
  Sender: FDA-Public Use
  Company Number: HQWYE359516FEB05

PATIENT
  Age: 54 Year
  Sex: Female

DRUGS (12)
  1. RAPAMUNE [Suspect]
     Indication: IMMUNOSUPPRESSANT DRUG THERAPY
     Dosage: 2 MG
  2. ENALAPRIL MALEATE [Suspect]
     Indication: HYPERTENSION
     Dosage: 2.5 MG 1X PER 1 DAY
  3. TACROLIMUS (TACROLIMUS) [Concomitant]
  4. MYCOPHENOLATE MOFETIL (MYCOPHENOLATE MOFETIL) [Concomitant]
  5. PREDNISONE [Concomitant]
  6. PREDNISONE [Concomitant]
  7. PREDNISONE [Concomitant]
  8. FUROSEMIDE [Concomitant]
  9. ATENOLOL [Concomitant]
  10. FELODIPINE [Concomitant]
  11. ASPIRIN [Concomitant]
  12. EPOETIN BETA (EPOETIN BETA) [Concomitant]

REACTIONS (2)
  - ANAPHYLACTIC REACTION [None]
  - DRUG INTERACTION [None]
